FAERS Safety Report 14092477 (Version 2)
Quarter: 2017Q4

REPORT INFORMATION
  Report Type: Report from Study
  Country: CZ (occurrence: CZ)
  Receive Date: 20171016
  Receipt Date: 20171019
  Transmission Date: 20180321
  Serious: Yes (Hospitalization)
  Sender: FDA-Public Use
  Company Number: CZ-JNJFOC-20171014099

PATIENT
  Sex: Male

DRUGS (7)
  1. METOCLOPRAMIDE HYDROCHLORIDE W/PARACETAMOL [Concomitant]
     Route: 065
  2. SIMPONI [Suspect]
     Active Substance: GOLIMUMAB
     Indication: ANKYLOSING SPONDYLITIS
     Route: 058
     Dates: start: 20111109
  3. PANTOPRAZOL [Concomitant]
     Active Substance: PANTOPRAZOLE SODIUM
     Route: 065
  4. TANTUM VERDE [Concomitant]
     Active Substance: BENZYDAMINE HYDROCHLORIDE
     Route: 065
  5. CLEXANE [Concomitant]
     Active Substance: ENOXAPARIN SODIUM
     Route: 058
  6. BRUFEN [Concomitant]
     Active Substance: IBUPROFEN
     Dosage: 2-3 TIMES PER DAY
     Route: 065
  7. NOVALGIN [Concomitant]
     Active Substance: METAMIZOLE SODIUM
     Route: 042

REACTIONS (2)
  - Peritonsillar abscess [Unknown]
  - Chronic tonsillitis [Recovering/Resolving]

NARRATIVE: CASE EVENT DATE: 2016
